FAERS Safety Report 9453908 (Version 2)
Quarter: 2013Q3

REPORT INFORMATION
  Report Type: Spontaneous
  Country: US (occurrence: US)
  Receive Date: 20130812
  Receipt Date: 20130828
  Transmission Date: 20140515
  Serious: Yes (Hospitalization, Other)
  Sender: FDA-Public Use
  Company Number: PHEH2013US016820

PATIENT
  Age: 41 Year
  Sex: Female
  Weight: 104.31 kg

DRUGS (7)
  1. FANAPT [Suspect]
     Indication: AFFECTIVE DISORDER
     Dosage: 1 MG, BID
     Route: 048
     Dates: start: 20130715, end: 20130731
  2. ANTIHYPERTENSIVE DRUGS [Concomitant]
  3. WATER PILLS [Concomitant]
  4. CARDIZEM [Concomitant]
     Dosage: 180 MG, DAILY
     Route: 048
  5. LEXAPRO [Concomitant]
     Dosage: 20 MG, DAILY
     Route: 048
  6. NEURONTIN [Concomitant]
     Dosage: 100 MG, TID
     Route: 048
  7. LAMICTAL [Concomitant]
     Dosage: 700 MG, DAILY
     Route: 048

REACTIONS (3)
  - Fall [Recovered/Resolved]
  - Head injury [Unknown]
  - Syncope [Unknown]
